FAERS Safety Report 15331967 (Version 5)
Quarter: 2019Q2

REPORT INFORMATION
  Report Type: Spontaneous
  Country: JP (occurrence: JP)
  Receive Date: 20180829
  Receipt Date: 20190522
  Transmission Date: 20190711
  Serious: Yes (Hospitalization, Other)
  Sender: FDA-Public Use
  Company Number: PHHY2018JP079049

PATIENT
  Age: 35 Year
  Sex: Female

DRUGS (3)
  1. NATALIZUMABUM [Concomitant]
     Indication: MULTIPLE SCLEROSIS RELAPSE
     Route: 065
  2. IMUSERA [Suspect]
     Active Substance: FINGOLIMOD HYDROCHLORIDE
     Indication: MULTIPLE SCLEROSIS
     Dosage: 0.5 MG
     Route: 048
  3. AZANIN [Suspect]
     Active Substance: AZATHIOPRINE
     Indication: MULTIPLE SCLEROSIS RELAPSE
     Dosage: 50 MG
     Route: 065

REACTIONS (2)
  - Rebound effect [Recovered/Resolved]
  - Lymphopenia [Recovered/Resolved]
